FAERS Safety Report 4383272-1 (Version None)
Quarter: 2004Q2

REPORT INFORMATION
  Report Type: 
  Country: None (occurrence: None)
  Receive Date: 20040618
  Receipt Date: 20040611
  Transmission Date: 20050107
  Serious: Yes (Hospitalization)
  Sender: FDA-Public Use
  Company Number: J081-002-001677

PATIENT
  Age: 76 Year
  Sex: Male
  Weight: 67 kg

DRUGS (8)
  1. ARICEPT [Suspect]
     Indication: DEMENTIA ALZHEIMER'S TYPE
     Dosage: SEE IMAGE
     Route: 048
     Dates: start: 20040202, end: 20040215
  2. ARICEPT [Suspect]
     Indication: DEMENTIA ALZHEIMER'S TYPE
     Dosage: SEE IMAGE
     Route: 048
     Dates: start: 20040216, end: 20040531
  3. KETAS (IBUDILAST) [Concomitant]
  4. STARSIS (NATEGLINIDE) [Concomitant]
  5. UNIPHYL [Concomitant]
  6. MUCODYNE (CARBOCISTEINE) [Concomitant]
  7. MUCOSAL L (AMBROXOL) [Concomitant]
  8. FLUTIDE (FLUTICASONE) [Concomitant]

REACTIONS (2)
  - RHABDOMYOLYSIS [None]
  - URINARY TRACT INFECTION [None]
